FAERS Safety Report 8534188-8 (Version None)
Quarter: 2012Q3

REPORT INFORMATION
  Report Type: 
  Country: None (occurrence: None)
  Receive Date: 20120724
  Receipt Date: 20120721
  Transmission Date: 20120928
  Serious: No
  Sender: FDA-Public Use
  Company Number: US-TEVA-349668USA

PATIENT
  Sex: Male

DRUGS (2)
  1. SYMBICORT [Concomitant]
  2. NUVIGIL [Suspect]
     Indication: CIRCADIAN RHYTHM SLEEP DISORDER
     Route: 050
     Dates: start: 20120720

REACTIONS (1)
  - HEADACHE [None]
